FAERS Safety Report 7969030-7 (Version None)
Quarter: 2011Q4

REPORT INFORMATION
  Report Type: 
  Country: None (occurrence: None)
  Receive Date: 20111208
  Receipt Date: 20111123
  Transmission Date: 20120403
  Serious: Yes (Other)
  Sender: FDA-Public Use
  Company Number: 2011MPI00253

PATIENT
  Age: 24 Year
  Sex: Male

DRUGS (5)
  1. BACTRIUM DS (SULFAMETHOXAZOLE, TRIMETHOPRIM) [Concomitant]
  2. PREDNISOLONE ACETATE [Concomitant]
  3. ACYCLOVIR [Concomitant]
  4. RABEPRAZOLE SODIUM [Concomitant]
  5. BRENTUXIMAB VEDOTIN (BRENTUXIMAB VEDOTIN) INJECTION [Suspect]
     Indication: HODGKIN'S DISEASE
     Dosage: 140 MG,
     Dates: start: 20110419, end: 20110826

REACTIONS (2)
  - LOBAR PNEUMONIA [None]
  - CANDIDIASIS [None]
